FAERS Safety Report 20018874 (Version 1)
Quarter: 2021Q4

REPORT INFORMATION
  Report Type: Spontaneous
  Country: GB (occurrence: GB)
  Receive Date: 20211101
  Receipt Date: 20211101
  Transmission Date: 20220303
  Serious: Yes (Other)
  Sender: FDA-Public Use
  Company Number: None

PATIENT

DRUGS (1)
  1. PREDNISOLONE [Suspect]
     Active Substance: PREDNISOLONE
     Dosage: 30 MG, QD
     Route: 048
     Dates: start: 20211019, end: 202110

REACTIONS (4)
  - Fatigue [Unknown]
  - Somnolence [Unknown]
  - Confusional state [Unknown]
  - Dizziness [Unknown]

NARRATIVE: CASE EVENT DATE: 20211019
